FAERS Safety Report 5181315-9 (Version None)
Quarter: 2006Q4

REPORT INFORMATION
  Report Type: 
  Country: None (occurrence: None)
  Receive Date: 20061220
  Receipt Date: 20051209
  Transmission Date: 20070319
  Serious: No
  Sender: FDA-Public Use
  Company Number: US-GLAXOSMITHKLINE-A0585326A

PATIENT
  Age: 19 Year
  Sex: Male

DRUGS (2)
  1. COMMIT [Suspect]
     Dates: start: 20051126
  2. NICODERM CQ [Suspect]

REACTIONS (6)
  - APPLICATION SITE ERYTHEMA [None]
  - APPLICATION SITE PRURITUS [None]
  - ASTHENIA [None]
  - DIZZINESS [None]
  - HEART RATE INCREASED [None]
  - OEDEMA PERIPHERAL [None]
